FAERS Safety Report 17224937 (Version 1)
Quarter: 2019Q4

REPORT INFORMATION
  Report Type: Spontaneous
  Country: US (occurrence: US)
  Receive Date: 20191209
  Receipt Date: 20191209
  Transmission Date: 20200122
  Serious: Yes (Other)
  Sender: FDA-Public Use
  Company Number: None

PATIENT
  Age: 16 Year
  Sex: Male
  Weight: 30 kg

DRUGS (41)
  1. BUSPRIONE HCL (BUSPIRONE ORAL) [Concomitant]
  2. GLYCOPYRROLATE (ROBINUL FORTE) [Concomitant]
  3. MINERAL OIL/PETROLATUM, WHITE (REFRESH P.M. OPHT) [Concomitant]
  4. NYSTATIN (MYCOSTATIN) TOPICAL POWDER [Concomitant]
  5. ALBUTEROL. [Concomitant]
     Active Substance: ALBUTEROL
  6. ARTIFICIAL TEARS (ISOPTO TEARS) [Concomitant]
  7. CLONIDINE HCL ORAL [Concomitant]
  8. DIAZEPAM (DIASTAT ACUDIAL) [Concomitant]
  9. DILANTIN INFATABS [Concomitant]
     Active Substance: PHENYTOIN
  10. GLYCERIN, BULK, MISC [Concomitant]
  11. KETOCONAZOLE (NIZORAL) [Concomitant]
  12. PREVACID SOLUTAB [Concomitant]
     Active Substance: LANSOPRAZOLE
  13. LIDOCAINE-ALOE VERA TOP [Concomitant]
  14. NACI 0.9% (NS) [Concomitant]
  15. TYLENOL [Concomitant]
     Active Substance: ACETAMINOPHEN
  16. BLOOD SUGAR DIAGNOSTIC (FREESTYLE LITE STRIPS) [Concomitant]
  17. FLUCONAZOLE ORAL [Concomitant]
     Active Substance: FLUCONAZOLE
  18. FLUTICASONE HFA (FLOVEN HFA) [Concomitant]
  19. MELATONIN [Concomitant]
     Active Substance: MELATONIN
  20. BACTROBAN [Concomitant]
     Active Substance: MUPIROCIN\MUPIROCIN CALCIUM
  21. CETIRIZINE HCL (ZYRTEC) [Concomitant]
  22. FOLIC ACID/MV, IRON, MIN (CENTRUM ORAL) [Concomitant]
  23. LEVALBUTEROL (XOPENEX) [Concomitant]
  24. MEDICAL SUPPLY, MISCELLANEOUS [Concomitant]
  25. NYSTATIN (MYCOSTATIN) OINTMENT [Concomitant]
  26. PROVENTIL HFA [Suspect]
     Active Substance: ALBUTEROL SULFATE
  27. COLLAGENASE SANTYL [Concomitant]
     Active Substance: COLLAGENASE CLOSTRIDIUM HISTOLYTICUM
  28. ACETONE, URINE TEST STRIP [Concomitant]
  29. KLONOPIN [Concomitant]
     Active Substance: CLONAZEPAM
  30. KETONE BLOOD TEST STRIP [Concomitant]
  31. NO DRUG NAME [Concomitant]
  32. NAPROXEN SODIUM (ALEVE ORAL) [Concomitant]
  33. LANSOPRAZOLE 30MG (GENERIC) [Suspect]
     Active Substance: LANSOPRAZOLE
     Indication: GASTROOESOPHAGEAL REFLUX DISEASE
     Route: 048
     Dates: start: 20190909
  34. BACITRACIN, BULK, MISC [Concomitant]
  35. NEURONTIN [Concomitant]
     Active Substance: GABAPENTIN
  36. LANCETS (FREESTYLE) [Concomitant]
  37. LANSOPRAZOLE 30MG (GENERIC) [Suspect]
     Active Substance: LANSOPRAZOLE
     Indication: VOMITING
  38. BUDESONIDE (PULMICORT) [Concomitant]
  39. HAPPY HINEY, TOPICAL [Concomitant]
  40. IBUPROFEN, BULK, MISC [Concomitant]
  41. ZINC OXIDE (TRIPLE PASTE TOP) [Concomitant]

REACTIONS (3)
  - Drug ineffective [None]
  - Product substitution issue [None]
  - Vomiting [None]

NARRATIVE: CASE EVENT DATE: 20191101
